FAERS Safety Report 9374942 (Version 1)
Quarter: 2013Q2

REPORT INFORMATION
  Report Type: Spontaneous
  Country: GB (occurrence: GB)
  Receive Date: 20130628
  Receipt Date: 20130628
  Transmission Date: 20140414
  Serious: Yes (Life-Threatening, Hospitalization)
  Sender: FDA-Public Use
  Company Number: GB-JNJFOC-20130616256

PATIENT
  Age: 67 Year
  Sex: Female
  Weight: 73 kg

DRUGS (7)
  1. XARELTO [Suspect]
     Indication: THROMBOSIS PROPHYLAXIS
     Route: 048
     Dates: start: 20130511, end: 20130517
  2. IBUPROFEN [Concomitant]
     Route: 065
  3. LACTULOSE [Concomitant]
     Route: 065
  4. PARACETAMOL [Concomitant]
     Route: 065
  5. ONDANSETRON [Concomitant]
     Route: 065
  6. PREGABALIN [Concomitant]
     Route: 065
  7. LANSOPRAZOLE [Concomitant]
     Route: 065

REACTIONS (4)
  - Colitis ulcerative [Not Recovered/Not Resolved]
  - Diarrhoea [Unknown]
  - Vomiting [Unknown]
  - Abdominal pain [Unknown]
